FAERS Safety Report 6625652-7 (Version None)
Quarter: 2010Q1

REPORT INFORMATION
  Report Type: 
  Country: None (occurrence: None)
  Receive Date: 20100223
  Receipt Date: 20091111
  Transmission Date: 20100710
  Serious: No
  Sender: FDA-Public Use
  Company Number: 8054618

PATIENT
  Sex: Female

DRUGS (1)
  1. UCB, INC. [Suspect]
     Dosage: (SUBCUTANEOUS)
     Route: 058
     Dates: start: 20090703

REACTIONS (3)
  - MUSCLE SPASMS [None]
  - NAUSEA [None]
  - PAIN [None]
